FAERS Safety Report 6910304-6 (Version None)
Quarter: 2010Q3

REPORT INFORMATION
  Report Type: 
  Country: None (occurrence: None)
  Receive Date: 20100806
  Receipt Date: 20100802
  Transmission Date: 20110219
  Serious: Yes (Life-Threatening)
  Sender: FDA-Public Use
  Company Number: FR-ASTRAZENECA-2010SE35965

PATIENT
  Age: 16543 Day
  Sex: Female

DRUGS (3)
  1. DIPRIVAN [Suspect]
     Route: 042
     Dates: start: 20100607
  2. SUCCINYLCHOLINE CHLORIDE [Suspect]
     Route: 042
     Dates: start: 20100607, end: 20100607
  3. ULTIVA [Suspect]
     Route: 042
     Dates: start: 20100607

REACTIONS (1)
  - ANAPHYLACTIC SHOCK [None]
